FAERS Safety Report 6222657-5 (Version None)
Quarter: 2009Q2

REPORT INFORMATION
  Report Type: 
  Country: None (occurrence: None)
  Receive Date: 20090611
  Receipt Date: 20090529
  Transmission Date: 20091009
  Serious: Yes (Hospitalization, Other)
  Sender: FDA-Public Use
  Company Number: GB-ELI_LILLY_AND_COMPANY-GB200905005955

PATIENT
  Age: 40 Year
  Sex: Male

DRUGS (5)
  1. OLANZAPINE [Suspect]
     Indication: SCHIZOAFFECTIVE DISORDER
     Dosage: 10 MG, DAILY (1/D)
     Route: 048
  2. CARBAMAZEPINE [Concomitant]
     Indication: EPILEPSY
     Dosage: 200 MG, 3/D
     Route: 048
  3. LEVETIRACETAM [Concomitant]
     Indication: EPILEPSY
     Dosage: 1500 MG, 2/D
     Route: 048
  4. DIAZEPAM [Concomitant]
  5. MULTI-VITAMIN [Concomitant]

REACTIONS (1)
  - NEUTROPENIA [None]
